FAERS Safety Report 13794659 (Version 1)
Quarter: 2017Q3

REPORT INFORMATION
  Report Type: Spontaneous
  Country: US (occurrence: US)
  Receive Date: 20170726
  Receipt Date: 20170726
  Transmission Date: 20171127
  Serious: No
  Sender: FDA-Public Use
  Company Number: US-PFIZER INC-2017317453

PATIENT
  Sex: Male

DRUGS (5)
  1. VENLAFAXINE HCL [Suspect]
     Active Substance: VENLAFAXINE HYDROCHLORIDE
     Dosage: 150 MG, UNK
  2. METOPROLOL. [Suspect]
     Active Substance: METOPROLOL
     Dosage: 50 MG, UNK
  3. GABAPENTIN. [Suspect]
     Active Substance: GABAPENTIN
     Dosage: 300 MG, UNK
  4. METHOTREXATE SODIUM. [Suspect]
     Active Substance: METHOTREXATE SODIUM
     Dosage: 12.5 MG, UNK
  5. FUROSEMIDE. [Suspect]
     Active Substance: FUROSEMIDE
     Dosage: 40 MG, UNK

REACTIONS (31)
  - Pain [Unknown]
  - Decreased appetite [Unknown]
  - Dry eye [Unknown]
  - Gait disturbance [Unknown]
  - Dry mouth [Unknown]
  - Hyperkeratosis [Unknown]
  - Onychomycosis [Unknown]
  - Abdominal tenderness [Unknown]
  - Synovitis [Unknown]
  - Arthralgia [Unknown]
  - Foot deformity [Unknown]
  - Nodule [Unknown]
  - Soft tissue swelling [Unknown]
  - Hypoaesthesia [Unknown]
  - Musculoskeletal stiffness [Unknown]
  - Fatigue [Unknown]
  - Erythema [Unknown]
  - Pain in extremity [Unknown]
  - Joint effusion [Unknown]
  - Bone swelling [Unknown]
  - Localised infection [Unknown]
  - Dyspepsia [Unknown]
  - Joint swelling [Unknown]
  - Peripheral swelling [Unknown]
  - Muscular weakness [Unknown]
  - Muscle contracture [Unknown]
  - Somnolence [Unknown]
  - Joint range of motion decreased [Unknown]
  - Abdominal pain [Unknown]
  - Poor quality sleep [Unknown]
  - Mood altered [Unknown]
